FAERS Safety Report 18493629 (Version 3)
Quarter: 2021Q1

REPORT INFORMATION
  Report Type: Spontaneous
  Country: US (occurrence: US)
  Receive Date: 20201111
  Receipt Date: 20210315
  Transmission Date: 20210419
  Serious: Yes (Other)
  Sender: FDA-Public Use
  Company Number: US-TAKEDA-2020TUS048047

PATIENT
  Sex: Male
  Weight: 77.1 kg

DRUGS (9)
  1. TAKHZYRO [Suspect]
     Active Substance: LANADELUMAB-FLYO
     Indication: PRODUCT USED FOR UNKNOWN INDICATION
     Dosage: 300 MILLIGRAM
     Route: 065
     Dates: start: 20200706
  2. FIRAZYR [Suspect]
     Active Substance: ICATIBANT ACETATE
     Dosage: UNK
     Route: 058
     Dates: start: 20200811
  3. FIRAZYR [Suspect]
     Active Substance: ICATIBANT ACETATE
     Dosage: 3O MG/ 3ML, PRN
     Route: 058
     Dates: start: 20200811
  4. TAKHZYRO [Suspect]
     Active Substance: LANADELUMAB-FLYO
     Dosage: 300MG/2ML, Q2WEEKS
     Route: 058
     Dates: start: 20200811
  5. FIRAZYR [Suspect]
     Active Substance: ICATIBANT ACETATE
     Indication: PRODUCT USED FOR UNKNOWN INDICATION
     Dosage: 30 MILLIGRAM
     Route: 065
     Dates: start: 20200706
  6. FIRAZYR [Suspect]
     Active Substance: ICATIBANT ACETATE
     Dosage: 3O MG/ 3ML, PRN
     Route: 058
     Dates: start: 20200811
  7. TAKHZYRO [Suspect]
     Active Substance: LANADELUMAB-FLYO
     Dosage: UNK UNK, Q2WEEKS
     Route: 058
     Dates: start: 20200801
  8. FIRAZYR [Suspect]
     Active Substance: ICATIBANT ACETATE
     Indication: PRODUCT USED FOR UNKNOWN INDICATION
     Dosage: 30 MILLIGRAM
     Route: 065
     Dates: start: 20200706
  9. FIRAZYR [Suspect]
     Active Substance: ICATIBANT ACETATE
     Dosage: UNK
     Route: 058
     Dates: start: 20200811

REACTIONS (3)
  - Weight increased [Unknown]
  - Weight decreased [Unknown]
  - COVID-19 [Unknown]
